FAERS Safety Report 26160623 (Version 1)
Quarter: 2025Q4

REPORT INFORMATION
  Report Type: Report from Study
  Country: KR (occurrence: KR)
  Receive Date: 20251216
  Receipt Date: 20251216
  Transmission Date: 20260117
  Serious: Yes (Hospitalization, Other)
  Sender: JOHNSON AND JOHNSON
  Company Number: KR-JNJFOC-20251210158

PATIENT
  Age: 66 Year
  Sex: Female
  Weight: 51 kg

DRUGS (83)
  1. TECLISTAMAB [Suspect]
     Active Substance: TECLISTAMAB
     Indication: Plasma cell myeloma
     Route: 058
     Dates: start: 20250617, end: 20250617
  2. TECLISTAMAB [Suspect]
     Active Substance: TECLISTAMAB
     Route: 058
     Dates: start: 20250619, end: 20250619
  3. TECLISTAMAB [Suspect]
     Active Substance: TECLISTAMAB
     Route: 058
     Dates: start: 20250626, end: 20250626
  4. TECLISTAMAB [Suspect]
     Active Substance: TECLISTAMAB
     Route: 058
     Dates: start: 20250703, end: 20250703
  5. TECLISTAMAB [Suspect]
     Active Substance: TECLISTAMAB
     Route: 058
     Dates: start: 20250710, end: 20250710
  6. TECLISTAMAB [Suspect]
     Active Substance: TECLISTAMAB
     Route: 058
     Dates: start: 20250717, end: 20250717
  7. TECLISTAMAB [Suspect]
     Active Substance: TECLISTAMAB
     Route: 058
     Dates: start: 20250821, end: 20250821
  8. TECLISTAMAB [Suspect]
     Active Substance: TECLISTAMAB
     Route: 058
     Dates: start: 20250911, end: 20250911
  9. TECLISTAMAB [Suspect]
     Active Substance: TECLISTAMAB
     Route: 058
     Dates: start: 20250925, end: 20250925
  10. TECLISTAMAB [Suspect]
     Active Substance: TECLISTAMAB
     Route: 058
     Dates: start: 20251016
  11. TECLISTAMAB [Suspect]
     Active Substance: TECLISTAMAB
     Route: 058
     Dates: start: 20251106
  12. TECLISTAMAB [Suspect]
     Active Substance: TECLISTAMAB
     Route: 058
     Dates: start: 20251203
  13. TECLISTAMAB [Suspect]
     Active Substance: TECLISTAMAB
     Route: 058
     Dates: start: 20250621, end: 20250621
  14. INVANZ [Concomitant]
     Active Substance: ERTAPENEM SODIUM
     Indication: Urosepsis
     Route: 042
     Dates: start: 20250722, end: 20250811
  15. AZITHROMYCIN [Concomitant]
     Active Substance: AZITHROMYCIN
     Indication: Urosepsis
     Route: 042
     Dates: start: 20250721, end: 20250721
  16. AZITHROMYCIN [Concomitant]
     Active Substance: AZITHROMYCIN
     Route: 042
     Dates: start: 20250722, end: 20250722
  17. AZITHROMYCIN [Concomitant]
     Active Substance: AZITHROMYCIN
     Route: 042
     Dates: start: 20250811, end: 20250811
  18. AZITHROMYCIN [Concomitant]
     Active Substance: AZITHROMYCIN
     Route: 042
     Dates: start: 20250720, end: 20250720
  19. PENIRAMIN [Concomitant]
     Indication: Urosepsis
     Route: 042
     Dates: start: 20250720, end: 20250720
  20. PENIRAMIN [Concomitant]
     Route: 042
     Dates: start: 20250811, end: 20250811
  21. TRISON [BENZALKONIUM CHLORIDE] [Concomitant]
     Indication: Urosepsis
     Route: 042
     Dates: start: 20250720, end: 20250720
  22. DEXAMETHASONE SODIUM PHOSPHATE [Concomitant]
     Active Substance: DEXAMETHASONE SODIUM PHOSPHATE
     Indication: Urosepsis
     Route: 042
     Dates: start: 20250720, end: 20250720
  23. DEXAMETHASONE SODIUM PHOSPHATE [Concomitant]
     Active Substance: DEXAMETHASONE SODIUM PHOSPHATE
     Indication: Premedication
     Route: 042
     Dates: start: 20250811, end: 20250811
  24. DEXAMETHASONE SODIUM PHOSPHATE [Concomitant]
     Active Substance: DEXAMETHASONE SODIUM PHOSPHATE
     Route: 042
     Dates: start: 20250811, end: 20250811
  25. DEXAMETHASONE SODIUM PHOSPHATE [Concomitant]
     Active Substance: DEXAMETHASONE SODIUM PHOSPHATE
     Route: 042
  26. DEXAMETHASONE SODIUM PHOSPHATE [Concomitant]
     Active Substance: DEXAMETHASONE SODIUM PHOSPHATE
     Route: 042
     Dates: start: 20250617, end: 20250617
  27. PROPACETAMOL HYDROCHLORIDE [Concomitant]
     Active Substance: PROPACETAMOL HYDROCHLORIDE
     Indication: Pyrexia
     Route: 042
     Dates: start: 20250720, end: 20250720
  28. PROPACETAMOL HYDROCHLORIDE [Concomitant]
     Active Substance: PROPACETAMOL HYDROCHLORIDE
     Indication: Chills
  29. POSPENEM [Concomitant]
     Indication: Urinary tract infection bacterial
     Route: 042
     Dates: start: 20250812, end: 20250813
  30. SULFAMETHOXAZOLE\TRIMETHOPRIM [Concomitant]
     Active Substance: SULFAMETHOXAZOLE\TRIMETHOPRIM
     Indication: Urinary tract infection bacterial
     Dosage: 2 TAB
     Route: 048
     Dates: start: 20250820, end: 20250820
  31. SULFAMETHOXAZOLE\TRIMETHOPRIM [Concomitant]
     Active Substance: SULFAMETHOXAZOLE\TRIMETHOPRIM
     Indication: Infection
     Dosage: 4
     Route: 048
     Dates: start: 20250821, end: 20250905
  32. SULFAMETHOXAZOLE\TRIMETHOPRIM [Concomitant]
     Active Substance: SULFAMETHOXAZOLE\TRIMETHOPRIM
     Dosage: 4
     Route: 048
     Dates: start: 20250911, end: 20250921
  33. ACYCLOVIR [Concomitant]
     Active Substance: ACYCLOVIR
     Indication: Urinary tract infection bacterial
     Route: 048
     Dates: start: 20250811, end: 20250822
  34. ACYCLOVIR [Concomitant]
     Active Substance: ACYCLOVIR
     Indication: Infection
     Route: 048
  35. MEROPENEM [Concomitant]
     Active Substance: MEROPENEM
     Indication: Urinary tract infection bacterial
     Route: 042
     Dates: start: 20250814, end: 20250820
  36. SPORANOX [Concomitant]
     Active Substance: ITRACONAZOLE
     Indication: Urinary tract infection bacterial
     Route: 048
  37. SPORANOX [Concomitant]
     Active Substance: ITRACONAZOLE
     Route: 048
     Dates: start: 20250814, end: 20250822
  38. BROMFENAC SODIUM [Concomitant]
     Active Substance: BROMFENAC SODIUM
     Indication: Cataract
     Dosage: PRN
     Route: 048
  39. CRAVIT [LEVOFLOXACIN] [Concomitant]
     Indication: Cataract
     Route: 048
  40. CHONDROITIN SULFATE (BOVINE)\HYALURONATE SODIUM [Concomitant]
     Active Substance: CHONDROITIN SULFATE (BOVINE)\HYALURONATE SODIUM
     Indication: Intraocular lens implant
     Route: 048
     Dates: start: 20251024, end: 20251024
  41. KLENZO [Concomitant]
     Indication: Intraocular lens implant
     Route: 048
     Dates: start: 20251024, end: 20251024
  42. PREDBELL [Concomitant]
     Indication: Cataract
     Dosage: 1%
     Route: 048
  43. PHENYLEPHRINE HYDROCHLORIDE\TROPICAMIDE [Concomitant]
     Active Substance: PHENYLEPHRINE HYDROCHLORIDE\TROPICAMIDE
     Indication: Cataract
     Route: 048
     Dates: start: 20251024, end: 20251024
  44. PHENYLEPHRINE HYDROCHLORIDE\TROPICAMIDE [Concomitant]
     Active Substance: PHENYLEPHRINE HYDROCHLORIDE\TROPICAMIDE
     Indication: Ophthalmological examination
     Route: 048
     Dates: start: 20251109, end: 20251109
  45. LIV GAMMA SN [Concomitant]
     Indication: Neutropenia
     Route: 042
     Dates: start: 20251106, end: 20251106
  46. LIV GAMMA SN [Concomitant]
     Route: 042
     Dates: start: 20251106, end: 20251106
  47. ACETPHEN PREMIX [Concomitant]
     Indication: Urinary tract infection bacterial
     Route: 042
     Dates: start: 20250811, end: 20250811
  48. AVAXIM [Concomitant]
     Active Substance: HEPATITIS A VACCINE, INACTIVATED
     Indication: Hepatitis A
     Dosage: 160 U
     Route: 030
     Dates: start: 20250703, end: 20250703
  49. COMBIFLEX PERI [AMINO ACIDS NOS;ELECTROLYTES NOS;GLUCOSE] [Concomitant]
     Indication: Nutritional supplementation
     Dosage: 160 U
     Route: 030
     Dates: start: 20250724, end: 20250724
  50. EUVAX B [Concomitant]
     Active Substance: HEPATITIS B VIRUS VACCINE
     Indication: Hepatitis B
     Dosage: 160 U
     Route: 030
     Dates: start: 20250703, end: 20250703
  51. MEPERIDINE HYDROCHLORIDE [Concomitant]
     Active Substance: MEPERIDINE HYDROCHLORIDE
     Indication: Intraocular lens implant
     Route: 042
     Dates: start: 20251024, end: 20251024
  52. GASTER [CROMOGLICATE SODIUM] [Concomitant]
     Indication: Urosepsis
     Route: 042
     Dates: start: 20250720, end: 20250720
  53. MECCOL [Concomitant]
     Indication: Urosepsis
     Route: 042
     Dates: start: 20250720, end: 20250720
  54. VITAMINS [Concomitant]
     Active Substance: VITAMINS
     Indication: Vitamin supplementation
     Route: 042
     Dates: start: 20250721, end: 20250724
  55. LENOGRASTIM [Concomitant]
     Active Substance: LENOGRASTIM
     Indication: Neutropenia
     Route: 058
     Dates: start: 20250617, end: 20250617
  56. OCTSTATIN [Concomitant]
     Indication: Diarrhoea
     Route: 042
     Dates: start: 20251013, end: 20251014
  57. OMAPPLUSONE PERI [Concomitant]
     Indication: Diarrhoea
     Route: 042
     Dates: start: 20251012, end: 20251017
  58. OMAPPLUSONE PERI [Concomitant]
     Route: 042
     Dates: start: 20251013, end: 20251013
  59. SHINGRIX [Concomitant]
     Active Substance: RECOMBINANT VARICELLA ZOSTER VIRUS (VZV) GLYCOPROTEIN E
     Indication: Herpes zoster reactivation
     Route: 030
     Dates: start: 20250703, end: 20250703
  60. CODENING [Concomitant]
     Indication: Cough
     Dosage: 3
     Route: 048
     Dates: start: 20250717, end: 20250820
  61. CYCIN [CIPROFLOXACIN HYDROCHLORIDE] [Concomitant]
     Indication: Urosepsis
     Route: 048
     Dates: start: 20250807, end: 20250820
  62. CYCIN [CIPROFLOXACIN HYDROCHLORIDE] [Concomitant]
     Indication: Infection
     Route: 048
     Dates: start: 20250904, end: 20250917
  63. CYCIN [CIPROFLOXACIN HYDROCHLORIDE] [Concomitant]
     Route: 048
  64. ENTEONE [Concomitant]
     Indication: Hepatitis B
     Route: 048
  65. FRASINYL [Concomitant]
     Indication: Infection
     Route: 048
     Dates: start: 20250807, end: 20250916
  66. NAFTOPIDIL [Concomitant]
     Active Substance: NAFTOPIDIL
     Indication: Neurogenic bladder
     Route: 048
     Dates: start: 20250901, end: 20250916
  67. FOLIC ACID [Concomitant]
     Active Substance: FOLIC ACID
     Indication: Folate deficiency
     Route: 048
  68. FOTAGEL [Concomitant]
     Indication: Diarrhoea
     Dosage: 3 PACK
     Route: 048
     Dates: start: 20250722, end: 20250727
  69. FOTAGEL [Concomitant]
     Dosage: 3 PACK
     Route: 048
     Dates: start: 20250814, end: 20250817
  70. FOTAGEL [Concomitant]
     Dosage: 3 PACK
     Route: 048
     Dates: start: 20251011, end: 20251014
  71. K CONTIN CONTINUS [Concomitant]
     Indication: Hypokalaemia
     Dosage: 3 TAB
     Route: 048
     Dates: start: 20251011, end: 20251014
  72. LANSOPRAZOLE [Concomitant]
     Active Substance: LANSOPRAZOLE
     Indication: Gastrointestinal disorder
     Route: 048
     Dates: start: 20230921, end: 20250623
  73. LANSOPRAZOLE [Concomitant]
     Active Substance: LANSOPRAZOLE
     Dosage: 1 CAP
     Route: 048
  74. LYRICA [Concomitant]
     Active Substance: PREGABALIN
     Indication: Pain
     Dosage: 1 CAP
     Route: 048
     Dates: start: 20250102, end: 20250820
  75. MONUROL [Concomitant]
     Active Substance: FOSFOMYCIN TROMETHAMINE
     Indication: Infection
     Dosage: 1 PACK
     Route: 048
     Dates: start: 20250828, end: 20250831
  76. MONUROL [Concomitant]
     Active Substance: FOSFOMYCIN TROMETHAMINE
     Dosage: 1 PACK
     Route: 048
     Dates: start: 20250913, end: 20250913
  77. MONUROL [Concomitant]
     Active Substance: FOSFOMYCIN TROMETHAMINE
     Dosage: 1 PACK
     Route: 048
     Dates: start: 20250925, end: 20250925
  78. EBASTINE\PSEUDOEPHEDRINE HYDROCHLORIDE [Concomitant]
     Active Substance: EBASTINE\PSEUDOEPHEDRINE HYDROCHLORIDE
     Indication: Rhinitis
     Dosage: 2 CAP
     Route: 048
     Dates: start: 20250109, end: 20250820
  79. EBASTINE\PSEUDOEPHEDRINE HYDROCHLORIDE [Concomitant]
     Active Substance: EBASTINE\PSEUDOEPHEDRINE HYDROCHLORIDE
     Dosage: 1 PACK
     Route: 048
     Dates: start: 20250913, end: 20250913
  80. EBASTINE\PSEUDOEPHEDRINE HYDROCHLORIDE [Concomitant]
     Active Substance: EBASTINE\PSEUDOEPHEDRINE HYDROCHLORIDE
     Dosage: 1 PACK
     Route: 048
     Dates: start: 20250925, end: 20250925
  81. SILCON [Concomitant]
     Indication: Gastrointestinal disorder
     Dosage: 3 TAB
     Route: 048
     Dates: start: 20230904, end: 20250917
  82. TACENOL [Concomitant]
     Indication: Premedication
     Dosage: 8 HOURS?ER TABLET
     Route: 048
  83. TWOLION [Concomitant]
     Indication: Rhinitis
     Dosage: 2 TAB
     Route: 048

REACTIONS (2)
  - Pneumonia [Recovered/Resolved]
  - Hypokalaemia [Recovered/Resolved]

NARRATIVE: CASE EVENT DATE: 20251008
